FAERS Safety Report 7391373-9 (Version None)
Quarter: 2011Q2

REPORT INFORMATION
  Report Type: 
  Country: None (occurrence: None)
  Receive Date: 20110404
  Receipt Date: 20110328
  Transmission Date: 20111010
  Serious: No
  Sender: FDA-Public Use
  Company Number: US-PFIZER INC-2011069645

PATIENT
  Sex: Female

DRUGS (2)
  1. BEXTRA [Suspect]
     Indication: OEDEMA PERIPHERAL
     Dosage: UNK
  2. BEXTRA [Suspect]
     Indication: INFLAMMATION

REACTIONS (3)
  - FEELING ABNORMAL [None]
  - EMOTIONAL DISORDER [None]
  - NERVOUSNESS [None]
